FAERS Safety Report 24223544 (Version 1)
Quarter: 2024Q3

REPORT INFORMATION
  Report Type: Spontaneous
  Country: US (occurrence: None)
  Receive Date: 20240816
  Receipt Date: 20240816
  Transmission Date: 20241017
  Serious: Yes (Hospitalization)
  Sender: Public
  Company Number: None

PATIENT
  Sex: Male

DRUGS (2)
  1. TASIGNA [Suspect]
     Active Substance: NILOTINIB
     Indication: Gastrointestinal stromal tumour
     Dosage: 400 MG TWICE A DAY ORAL
     Route: 048
     Dates: start: 20220420
  2. TASIGNA [Suspect]
     Active Substance: NILOTINIB
     Indication: Gastric neoplasm

REACTIONS (1)
  - Haemorrhage [None]
